FAERS Safety Report 4346507-7 (Version None)
Quarter: 2004Q2

REPORT INFORMATION
  Report Type: 
  Country: None (occurrence: None)
  Receive Date: 20040426
  Receipt Date: 20031003
  Transmission Date: 20050107
  Serious: No
  Sender: FDA-Public Use
  Company Number: US-BRISTOL-MYERS SQUIBB COMPANY-12401238

PATIENT
  Age: 53 Year
  Sex: Female
  Weight: 100 kg

DRUGS (6)
  1. CARBOPLATIN [Suspect]
     Indication: OVARIAN CANCER
     Route: 042
     Dates: start: 20031002
  2. TAXOL [Concomitant]
     Indication: OVARIAN CANCER
     Route: 042
     Dates: start: 20030910, end: 20030910
  3. AMITRIPTYLINE HCL [Concomitant]
     Route: 048
  4. PRILOSEC [Concomitant]
  5. ULTRAM [Concomitant]
  6. COUMADIN [Concomitant]

REACTIONS (4)
  - EYE SWELLING [None]
  - FLUSHING [None]
  - HEADACHE [None]
  - NASAL CONGESTION [None]
